FAERS Safety Report 6737707-7 (Version None)
Quarter: 2010Q2

REPORT INFORMATION
  Report Type: 
  Country: None (occurrence: None)
  Receive Date: 20100524
  Receipt Date: 20100512
  Transmission Date: 20101027
  Serious: Yes (Other)
  Sender: FDA-Public Use
  Company Number: JP-ALLERGAN-1006552US

PATIENT
  Age: 78 Year
  Sex: Male

DRUGS (5)
  1. LUMIGAN [Suspect]
     Indication: OPEN ANGLE GLAUCOMA
     Dosage: 1 GTT, QD
     Route: 047
     Dates: start: 20091109
  2. CARTELOL [Concomitant]
     Dosage: UNK
     Dates: start: 20090603
  3. DORZOLAMIDE [Concomitant]
     Dosage: UNK
     Dates: start: 20090603
  4. LEVOFLOXACIN [Concomitant]
     Dosage: UNK
     Dates: start: 20090603
  5. FLUOROMETHOLONE [Concomitant]
     Dosage: UNK
     Dates: start: 20090603

REACTIONS (2)
  - OPTIC ATROPHY [None]
  - THERAPEUTIC RESPONSE DECREASED [None]
